FAERS Safety Report 6829728-0 (Version None)
Quarter: 2010Q3

REPORT INFORMATION
  Report Type: 
  Country: None (occurrence: None)
  Receive Date: 20100709
  Receipt Date: 20070517
  Transmission Date: 20110219
  Serious: Yes (Other)
  Sender: FDA-Public Use
  Company Number: US-PFIZER INC-2007019620

PATIENT
  Sex: Female
  Weight: 77.1 kg

DRUGS (4)
  1. CHANTIX [Suspect]
     Indication: SMOKING CESSATION THERAPY
     Dates: start: 20070214, end: 20070101
  2. EFFEXOR [Concomitant]
     Dosage: DAILY
  3. KLONOPIN [Concomitant]
  4. MULTI-VITAMINS [Concomitant]

REACTIONS (4)
  - COUGH [None]
  - DEPRESSION [None]
  - SUICIDAL IDEATION [None]
  - WEIGHT INCREASED [None]
